FAERS Safety Report 4431214-2 (Version None)
Quarter: 2004Q3

REPORT INFORMATION
  Report Type: 
  Country: None (occurrence: None)
  Receive Date: 20040824
  Receipt Date: 20040818
  Transmission Date: 20050211
  Serious: Yes (Hospitalization, Disabling, Other)
  Sender: FDA-Public Use
  Company Number: 200416203US

PATIENT
  Age: 70 Year
  Sex: Female

DRUGS (2)
  1. LOVENOX [Suspect]
     Indication: HIP ARTHROPLASTY
     Route: 058
     Dates: start: 20040801, end: 20040801
  2. HERBAL PREPARATION [Concomitant]
     Indication: HIP ARTHROPLASTY

REACTIONS (2)
  - MONOPLEGIA [None]
  - POST PROCEDURAL HAEMATOMA [None]
